FAERS Safety Report 24437918 (Version 1)
Quarter: 2024Q4

REPORT INFORMATION
  Report Type: Spontaneous
  Country: US (occurrence: None)
  Receive Date: 20241014
  Receipt Date: 20241014
  Transmission Date: 20250115
  Serious: Yes (Hospitalization)
  Sender: Public
  Company Number: None

PATIENT
  Age: 73 Year
  Sex: Female

DRUGS (1)
  1. IBRANCE [Suspect]
     Active Substance: PALBOCICLIB
     Indication: Breast cancer female
     Dosage: OTHER FREQUENCY : QDFOR21DAYS,7DAYSOFF;?
     Route: 048

REACTIONS (5)
  - White blood cell count decreased [None]
  - Fatigue [None]
  - Back pain [None]
  - Bone cancer [None]
  - Feeling hot [None]

NARRATIVE: CASE EVENT DATE: 20231014
